FAERS Safety Report 18991353 (Version 2)
Quarter: 2021Q2

REPORT INFORMATION
  Report Type: Spontaneous
  Country: US (occurrence: US)
  Receive Date: 20210310
  Receipt Date: 20210521
  Transmission Date: 20210717
  Serious: Yes (Hospitalization)
  Sender: FDA-Public Use
  Company Number: US-GLOBAL BLOOD THERAPEUTICS INC-US-GBT-21-00713

PATIENT
  Age: 54 Year
  Sex: Female

DRUGS (2)
  1. OXBRYTA [Suspect]
     Active Substance: VOXELOTOR
     Indication: HAEMOGLOBIN C DISEASE
     Route: 048
     Dates: start: 20201128
  2. DEFERASIROX. [Concomitant]
     Active Substance: DEFERASIROX
     Indication: PRODUCT USED FOR UNKNOWN INDICATION
     Dosage: NOT PROVIDED

REACTIONS (2)
  - Sickle cell anaemia with crisis [Unknown]
  - Sickle cell anaemia with crisis [Unknown]

NARRATIVE: CASE EVENT DATE: 20210214
